FAERS Safety Report 7417712-8 (Version None)
Quarter: 2011Q2

REPORT INFORMATION
  Report Type: 
  Country: None (occurrence: None)
  Receive Date: 20110415
  Receipt Date: 20110411
  Transmission Date: 20111010
  Serious: Yes (Death, Hospitalization)
  Sender: FDA-Public Use
  Company Number: PHBS2008BR06041

PATIENT
  Age: 42 Year
  Sex: Female

DRUGS (3)
  1. CICLOSPORIN [Suspect]
     Indication: RHEUMATOID ARTHRITIS
     Dosage: 100 MG, UNK
     Dates: start: 20040601, end: 20050501
  2. PREDNISONE [Suspect]
     Dosage: 90 MG/DAY
  3. METHOTREXATE [Concomitant]
     Dosage: 20 MG,/ WEEK

REACTIONS (33)
  - PURULENT DISCHARGE [None]
  - PRODUCTIVE COUGH [None]
  - RESPIRATORY TRACT INFECTION [None]
  - RESPIRATORY FAILURE [None]
  - NEUTROPENIA [None]
  - PANCYTOPENIA [None]
  - MYALGIA [None]
  - PETECHIAE [None]
  - ASPARTATE AMINOTRANSFERASE INCREASED [None]
  - ANAEMIA [None]
  - PYREXIA [None]
  - CHILLS [None]
  - COUGH [None]
  - ORAL DISORDER [None]
  - ALANINE AMINOTRANSFERASE INCREASED [None]
  - PHARYNGITIS [None]
  - MARROW HYPERPLASIA [None]
  - NAUSEA [None]
  - RALES [None]
  - SEPTIC SHOCK [None]
  - ORAL CANDIDIASIS [None]
  - VOMITING [None]
  - BLOOD LACTATE DEHYDROGENASE INCREASED [None]
  - FELTY'S SYNDROME [None]
  - FURUNCLE [None]
  - SKIN INFECTION [None]
  - ARTHRITIS [None]
  - SPLENOMEGALY [None]
  - BACTERIAL SEPSIS [None]
  - URINARY TRACT INFECTION [None]
  - LEUKOPENIA [None]
  - ASTHENIA [None]
  - ECCHYMOSIS [None]
